FAERS Safety Report 17117175 (Version 1)
Quarter: 2019Q4

REPORT INFORMATION
  Report Type: Spontaneous
  Country: US (occurrence: US)
  Receive Date: 20191205
  Receipt Date: 20191205
  Transmission Date: 20200122
  Serious: Yes (Death, Other)
  Sender: FDA-Public Use
  Company Number: US-STRIDES ARCOLAB LIMITED-2019SP012261

PATIENT
  Age: 65 Year
  Sex: Female

DRUGS (2)
  1. METRONIDAZOLE. [Suspect]
     Active Substance: METRONIDAZOLE
     Indication: PORTAL VEIN THROMBOSIS
     Dosage: 1.5 GRAM/ DAY
     Route: 042
  2. METRONIDAZOLE. [Suspect]
     Active Substance: METRONIDAZOLE
     Indication: CHOLECYSTITIS INFECTIVE
     Dosage: 1.5 GRAM PER DAY
     Route: 048

REACTIONS (4)
  - Mental status changes [Not Recovered/Not Resolved]
  - Disease progression [Fatal]
  - Toxic encephalopathy [Fatal]
  - Lethargy [Unknown]
